FAERS Safety Report 5720669-9 (Version None)
Quarter: 2008Q2

REPORT INFORMATION
  Report Type: 
  Country: None (occurrence: None)
  Receive Date: 20080424
  Receipt Date: 20080417
  Transmission Date: 20081010
  Serious: Yes (Hospitalization)
  Sender: FDA-Public Use
  Company Number: 2008SP06790

PATIENT
  Age: 34 Year
  Sex: Male

DRUGS (6)
  1. TEMODAR [Suspect]
     Indication: GLIOBLASTOMA
     Dosage: 140 MG;QD;PO
     Route: 048
     Dates: start: 20070726, end: 20070901
  2. BACTRIM DS [Concomitant]
  3. DEXAMETHASONE [Concomitant]
  4. KEPPRA [Concomitant]
  5. PROMETHAZINE [Concomitant]
  6. ZOLOFT [Concomitant]

REACTIONS (7)
  - APLASTIC ANAEMIA [None]
  - BONE MARROW FAILURE [None]
  - EPISTAXIS [None]
  - IDIOSYNCRATIC DRUG REACTION [None]
  - PANCYTOPENIA [None]
  - PETECHIAE [None]
  - PNEUMONIA FUNGAL [None]
